FAERS Safety Report 5343279-4 (Version None)
Quarter: 2007Q2

REPORT INFORMATION
  Report Type: 
  Country: None (occurrence: None)
  Receive Date: 20070502
  Receipt Date: 20061026
  Transmission Date: 20071010
  Serious: Yes (Other)
  Sender: FDA-Public Use
  Company Number: PHEH2006US13465

PATIENT
  Sex: Male

DRUGS (2)
  1. LOTREL [Suspect]
     Dosage: 5/40 MG OR 10/40 MG QD, ORAL
     Route: 048
  2. TARKA [Concomitant]

REACTIONS (1)
  - ANGIOEDEMA [None]
